FAERS Safety Report 6543008-2 (Version None)
Quarter: 2010Q1

REPORT INFORMATION
  Report Type: 
  Country: None (occurrence: None)
  Receive Date: 20100120
  Receipt Date: 20100114
  Transmission Date: 20100710
  Serious: Yes (Other)
  Sender: FDA-Public Use
  Company Number: US-ROCHE-679718

PATIENT
  Sex: Female
  Weight: 95.7 kg

DRUGS (2)
  1. CAPECITABINE [Suspect]
     Dosage: TWO WEEKS ON AND ONE WEEK OFF
     Route: 048
     Dates: start: 20090809, end: 20100103
  2. CAPECITABINE [Suspect]
     Dosage: DOSE LOWERED
     Route: 048

REACTIONS (2)
  - BREAST CANCER METASTATIC [None]
  - MALIGNANT NEOPLASM PROGRESSION [None]
